FAERS Safety Report 20364391 (Version 3)
Quarter: 2022Q1

REPORT INFORMATION
  Report Type: Spontaneous
  Country: US (occurrence: None)
  Receive Date: 20220121
  Receipt Date: 20220324
  Transmission Date: 20220423
  Serious: No
  Sender: FDA-Public Use
  Company Number: 2022A025457

PATIENT
  Age: 69 Year
  Sex: Male
  Weight: 102.1 kg

DRUGS (1)
  1. PULMICORT FLEXHALER [Suspect]
     Active Substance: BUDESONIDE
     Indication: Asthma
     Dosage: 1 PUFF BID
     Route: 055
     Dates: start: 20040604

REACTIONS (5)
  - Tremor [Unknown]
  - Neuropathy peripheral [Unknown]
  - Asthma [Unknown]
  - Device malfunction [Unknown]
  - Incorrect dose administered [Unknown]

NARRATIVE: CASE EVENT DATE: 20110101
